FAERS Safety Report 20201540 (Version 1)
Quarter: 2021Q4

REPORT INFORMATION
  Report Type: Spontaneous
  Country: PT (occurrence: PT)
  Receive Date: 20211217
  Receipt Date: 20211217
  Transmission Date: 20220303
  Serious: Yes (Other)
  Sender: FDA-Public Use
  Company Number: PT-AMGEN-PRTSP2021173133

PATIENT
  Age: 32 Year
  Sex: Male

DRUGS (2)
  1. ADALIMUMAB [Suspect]
     Active Substance: ADALIMUMAB
     Indication: Colitis ulcerative
     Dosage: 40 MILLIGRAM, Q2WK
     Dates: start: 201806
  2. ADALIMUMAB [Suspect]
     Active Substance: ADALIMUMAB
     Indication: Axial spondyloarthritis
     Dosage: 80 MILLIGRAM, Q2WK
     Route: 065
     Dates: start: 201903

REACTIONS (6)
  - Colitis ulcerative [Recovering/Resolving]
  - Bacterial infection [Unknown]
  - Enthesopathy [Recovering/Resolving]
  - Sacral pain [Unknown]
  - Oligoarthritis [Recovering/Resolving]
  - Psoriasis [Recovering/Resolving]

NARRATIVE: CASE EVENT DATE: 20200401
